FAERS Safety Report 13360543 (Version 3)
Quarter: 2017Q4

REPORT INFORMATION
  Report Type: Report from Study
  Country: ES (occurrence: ES)
  Receive Date: 20170322
  Receipt Date: 20171110
  Transmission Date: 20180320
  Serious: Yes (Hospitalization)
  Sender: FDA-Public Use
  Company Number: ES-JNJFOC-20170320791

PATIENT
  Age: 71 Year
  Sex: Male

DRUGS (13)
  1. LYRICA [Concomitant]
     Active Substance: PREGABALIN
     Route: 065
     Dates: start: 20170214
  2. SUMIAL [Concomitant]
     Active Substance: PROPRANOLOL HYDROCHLORIDE
     Route: 065
  3. TIORIDIL [Concomitant]
     Route: 065
     Dates: start: 20160712
  4. OMEPRAZOLE. [Concomitant]
     Active Substance: OMEPRAZOLE
     Route: 065
     Dates: start: 20160712
  5. MYSOLINE [Concomitant]
     Active Substance: PRIMIDONE
     Route: 065
  6. HEPARIN SODIUM. [Suspect]
     Active Substance: HEPARIN SODIUM
     Indication: PRODUCT USED FOR UNKNOWN INDICATION
     Route: 065
     Dates: start: 20160406, end: 20170305
  7. FORTASEC [Concomitant]
     Active Substance: LOPERAMIDE HYDROCHLORIDE
     Route: 065
     Dates: start: 20160712
  8. ENANTYUM [Concomitant]
     Active Substance: DEXKETOPROFEN TROMETAMOL
     Route: 065
     Dates: start: 20160712
  9. PARAFFIN [Concomitant]
     Active Substance: PARAFFIN
     Route: 065
     Dates: start: 20160712
  10. XARELTO [Suspect]
     Active Substance: RIVAROXABAN
     Indication: THROMBOSIS PROPHYLAXIS
     Route: 048
     Dates: start: 20170306, end: 20170314
  11. PRIMPERAN [Concomitant]
     Active Substance: METOCLOPRAMIDE HYDROCHLORIDE
     Route: 065
  12. NOLOTIL (METAMIZOLE MAGNESIUM) [Concomitant]
     Active Substance: METAMIZOLE MAGNESIUM
     Route: 065
     Dates: start: 20160712
  13. MEGEFREN [Concomitant]
     Route: 065
     Dates: start: 20160712

REACTIONS (1)
  - Pyrexia [Unknown]

NARRATIVE: CASE EVENT DATE: 20170314
